FAERS Safety Report 8062119-6 (Version None)
Quarter: 2012Q1

REPORT INFORMATION
  Report Type: 
  Country: None (occurrence: None)
  Receive Date: 20120123
  Receipt Date: 20120110
  Transmission Date: 20120608
  Serious: Yes (Other)
  Sender: FDA-Public Use
  Company Number: US-ELI_LILLY_AND_COMPANY-US201108000826

PATIENT
  Sex: Female

DRUGS (2)
  1. ACE INHIBITORS [Concomitant]
     Dosage: UNK, UNKNOWN
     Route: 065
  2. FORTEO [Suspect]
     Indication: BONE DISORDER
     Dosage: UNK, QD
     Dates: start: 20101001

REACTIONS (1)
  - GLOMERULAR FILTRATION RATE DECREASED [None]
